FAERS Safety Report 18580944 (Version 3)
Quarter: 2021Q1

REPORT INFORMATION
  Report Type: Spontaneous
  Country: JP (occurrence: JP)
  Receive Date: 20201204
  Receipt Date: 20210122
  Transmission Date: 20210419
  Serious: Yes (Death, Life-Threatening, Other)
  Sender: FDA-Public Use
  Company Number: JP-AMGEN-JPNSP2020156420

PATIENT
  Age: 80 Year
  Sex: Female
  Weight: 33 kg

DRUGS (5)
  1. EVENITY [Suspect]
     Active Substance: ROMOSOZUMAB-AQQG
     Indication: OSTEOPOROSIS
     Dosage: 210 MILLIGRAM
     Route: 058
     Dates: start: 20200124, end: 20200124
  2. BIO?THREE [Concomitant]
     Active Substance: HERBALS
     Dosage: 1 TABLET, TID
     Dates: start: 20200313, end: 20200522
  3. LANSOPRAZOLE. [Concomitant]
     Active Substance: LANSOPRAZOLE
     Dosage: 15 MILLIGRAM, QD
     Dates: start: 20200228, end: 20200522
  4. LOPEMIN [LOPERAMIDE HYDROCHLORIDE] [Concomitant]
     Active Substance: LOPERAMIDE HYDROCHLORIDE
     Dosage: 1 TABLET, QD
     Dates: start: 20200326, end: 20200522
  5. ASPARA POTASSIUM [Concomitant]
     Active Substance: POTASSIUM ASPARTATE
     Dosage: 0.6 GRAM, TID
     Dates: start: 20200309, end: 20200522

REACTIONS (4)
  - Atrial fibrillation [Fatal]
  - Femur fracture [Recovering/Resolving]
  - Fall [Recovering/Resolving]
  - Cerebral infarction [Fatal]

NARRATIVE: CASE EVENT DATE: 20200207
